FAERS Safety Report 16095856 (Version 1)
Quarter: 2019Q1

REPORT INFORMATION
  Report Type: Spontaneous
  Country: US (occurrence: US)
  Receive Date: 20190320
  Receipt Date: 20190320
  Transmission Date: 20190418
  Serious: Yes (Other)
  Sender: FDA-Public Use
  Company Number: PHEH2019US011084

PATIENT
  Sex: Male

DRUGS (1)
  1. TRAMETINIB [Suspect]
     Active Substance: TRAMETINIB
     Indication: METASTATIC OCULAR MELANOMA
     Dosage: 2 MG, QD
     Route: 065

REACTIONS (2)
  - Metastatic ocular melanoma [Unknown]
  - Malignant neoplasm progression [Unknown]
